FAERS Safety Report 7698713-1 (Version None)
Quarter: 2011Q3

REPORT INFORMATION
  Report Type: 
  Country: None (occurrence: None)
  Receive Date: 20110819
  Receipt Date: 20110809
  Transmission Date: 20111222
  Serious: Yes (Other)
  Sender: FDA-Public Use
  Company Number: US-JNJFOC-20110805834

PATIENT
  Age: 64 Year
  Sex: Male

DRUGS (3)
  1. AZATHIOPRINE [Concomitant]
     Route: 065
  2. PREDNISONE [Concomitant]
     Route: 065
  3. INFLIXIMAB, RECOMBINANT [Suspect]
     Indication: RHEUMATOID ARTHRITIS
     Route: 042

REACTIONS (1)
  - HISTOPLASMOSIS [None]
